FAERS Safety Report 7792901-1 (Version None)
Quarter: 2011Q4

REPORT INFORMATION
  Report Type: 
  Country: None (occurrence: None)
  Receive Date: 20111003
  Receipt Date: 20110921
  Transmission Date: 20120403
  Serious: Yes (Hospitalization)
  Sender: FDA-Public Use
  Company Number: PHHY2011JP84397

PATIENT
  Age: 80 Year
  Sex: Male

DRUGS (3)
  1. SEROQUEL [Concomitant]
     Dosage: UNK UKN, UNK
     Route: 048
  2. FLUNITRAZEPAM [Concomitant]
     Dosage: UNK UKN, UNK
     Route: 048
  3. EXELON [Suspect]
     Indication: DEMENTIA
     Dosage: 4.5 MG, DAILY
     Route: 062
     Dates: start: 20110915

REACTIONS (2)
  - BLOOD PRESSURE INCREASED [None]
  - MIOSIS [None]
